FAERS Safety Report 8593369-8 (Version None)
Quarter: 2012Q3

REPORT INFORMATION
  Report Type: 
  Country: None (occurrence: None)
  Receive Date: 20120814
  Receipt Date: 20120802
  Transmission Date: 20120928
  Serious: Yes (Other)
  Sender: FDA-Public Use
  Company Number: PHHY2012BR067486

PATIENT
  Sex: Female

DRUGS (7)
  1. AMLODOPINE BESYLATE AND VALSARTAN [Suspect]
     Indication: HYPERTENSION
     Dosage: 80/5 MG, ONCE IN THE MORNING
  2. DIPHENHYDRAMINE HCL [Suspect]
     Indication: HYPERSENSITIVITY
  3. AMLODOPINE BESYLATE AND VALSARTAN [Suspect]
     Indication: HYPERTENSION
     Dosage: 80/5 MG, ONCE IN THE MORNING
     Dates: start: 20060101
  4. ALLEGRA [Concomitant]
     Indication: HYPERSENSITIVITY
  5. LORATADINE [Concomitant]
     Indication: HYPERSENSITIVITY
     Dosage: 1 TABLET (10 MG) AT NIGHT
  6. DIPHENHYDRAMINE HCL [Suspect]
     Indication: COUGH
     Dosage: A FILM UNDER THE TONGUE AT NIGHT
     Dates: start: 20110101
  7. LORATADINE [Concomitant]
     Indication: RHINITIS

REACTIONS (1)
  - ASTHMA [None]
